FAERS Safety Report 25385864 (Version 1)
Quarter: 2025Q2

REPORT INFORMATION
  Report Type: Spontaneous
  Country: GB (occurrence: GB)
  Receive Date: 20250602
  Receipt Date: 20250602
  Transmission Date: 20250717
  Serious: Yes (Other)
  Sender: SK LIFE SCIENCE
  Company Number: None

PATIENT

DRUGS (8)
  1. XCOPRI [Suspect]
     Active Substance: CENOBAMATE
     Indication: Epilepsy
     Route: 065
     Dates: start: 20241118
  2. TEGRETOL [Concomitant]
     Active Substance: CARBAMAZEPINE
     Indication: Epilepsy
     Route: 065
     Dates: start: 20080101
  3. MIDAZOLAM [Concomitant]
     Active Substance: MIDAZOLAM
     Indication: Epilepsy
     Route: 065
  4. ACETAMINOPHEN [Concomitant]
     Active Substance: ACETAMINOPHEN
     Indication: Pain
     Route: 065
  5. NITROFURANTOIN [Concomitant]
     Active Substance: NITROFURANTOIN
     Indication: Pain
     Route: 065
     Dates: start: 20241221, end: 20241224
  6. INFLUENZA VIRUS VACCINE [Concomitant]
     Active Substance: INFLUENZA VIRUS VACCINE
     Indication: Product used for unknown indication
     Route: 065
     Dates: start: 20241005
  7. COVID-19 VACCINE [Concomitant]
     Indication: Product used for unknown indication
     Route: 065
     Dates: start: 20241014
  8. LORAZEPAM [Concomitant]
     Active Substance: LORAZEPAM
     Indication: Autism spectrum disorder
     Route: 065
     Dates: start: 2012

REACTIONS (4)
  - Amenorrhoea [Recovered/Resolved]
  - Leukocytosis [Recovered/Resolved]
  - Urinary tract infection [Recovered/Resolved]
  - Back pain [Recovered/Resolved]

NARRATIVE: CASE EVENT DATE: 20241215
